FAERS Safety Report 9823393 (Version 1)
Quarter: 2014Q1

REPORT INFORMATION
  Report Type: Spontaneous
  Country: US (occurrence: US)
  Receive Date: 20140116
  Receipt Date: 20140116
  Transmission Date: 20141002
  Serious: No
  Sender: FDA-Public Use
  Company Number: US-009507513-1401USA006172

PATIENT
  Age: 13 Year
  Sex: Female

DRUGS (1)
  1. MIRALAX [Suspect]
     Indication: FAECES HARD
     Dosage: A TEASPOON, UNKNOWN
     Route: 048

REACTIONS (2)
  - Drug administered to patient of inappropriate age [Unknown]
  - Off label use [Unknown]
